FAERS Safety Report 4937782-6 (Version None)
Quarter: 2006Q1

REPORT INFORMATION
  Report Type: 
  Country: None (occurrence: None)
  Receive Date: 20060309
  Receipt Date: 20050823
  Transmission Date: 20060701
  Serious: Yes (Disabling, Other)
  Sender: FDA-Public Use
  Company Number: US-MERCK-0508USA03895

PATIENT
  Age: 59 Year
  Sex: Female
  Weight: 57 kg

DRUGS (5)
  1. VIOXX [Suspect]
     Indication: SCIATICA
     Route: 048
     Dates: start: 20020601, end: 20040424
  2. VIOXX [Suspect]
     Indication: OSTEOARTHRITIS
     Route: 048
     Dates: start: 20020601, end: 20040424
  3. LEVOXYL [Concomitant]
     Route: 065
  4. MOTRIN [Concomitant]
     Route: 065
  5. ADVIL [Concomitant]
     Route: 065

REACTIONS (4)
  - BLOOD CHOLESTEROL INCREASED [None]
  - CEREBROVASCULAR ACCIDENT [None]
  - HYPERTENSION [None]
  - THYROID MASS [None]
